FAERS Safety Report 10701927 (Version 2)
Quarter: 2015Q1

REPORT INFORMATION
  Report Type: Spontaneous
  Country: US (occurrence: US)
  Receive Date: 20150109
  Receipt Date: 20150109
  Transmission Date: 20150721
  Serious: No
  Sender: FDA-Public Use
  Company Number: US-CELGENEUS-USA-2014094757

PATIENT
  Age: 54 Year
  Sex: Female

DRUGS (7)
  1. CLARITIN [Concomitant]
     Active Substance: LORATADINE
     Route: 065
  2. LEXAPRO [Concomitant]
     Active Substance: ESCITALOPRAM OXALATE
     Route: 065
  3. ATENOLOL. [Concomitant]
     Active Substance: ATENOLOL
     Route: 065
  4. OTEZLA [Suspect]
     Active Substance: APREMILAST
     Indication: PSORIATIC ARTHROPATHY
     Dosage: 60 MILLIGRAM
     Route: 048
  5. PEPCID [Concomitant]
     Active Substance: FAMOTIDINE
     Route: 065
  6. PRAVASTATIN [Concomitant]
     Active Substance: PRAVASTATIN\PRAVASTATIN SODIUM
     Route: 065
  7. MULTIVITAMIN [Concomitant]
     Active Substance: VITAMINS
     Route: 065

REACTIONS (5)
  - Sinusitis [Unknown]
  - Abdominal discomfort [Unknown]
  - Psoriatic arthropathy [Unknown]
  - Drug dose omission [Unknown]
  - Upper respiratory tract infection [Unknown]
